FAERS Safety Report 7882788-0 (Version None)
Quarter: 2011Q4

REPORT INFORMATION
  Report Type: 
  Country: None (occurrence: None)
  Receive Date: 20111101
  Receipt Date: 20110620
  Transmission Date: 20120403
  Serious: No
  Sender: FDA-Public Use
  Company Number: US-AMGEN-USASP2011031430

PATIENT
  Age: 67 Year
  Sex: Female
  Weight: 83.9 kg

DRUGS (1)
  1. ENBREL [Suspect]
     Indication: RHEUMATOID ARTHRITIS
     Dosage: 50 MG, QD
     Route: 058
     Dates: start: 20100201

REACTIONS (4)
  - INJECTION SITE REACTION [None]
  - PRURITUS [None]
  - INJECTION SITE PRURITUS [None]
  - INJECTION SITE SWELLING [None]
